FAERS Safety Report 4662235-2 (Version None)
Quarter: 2005Q2

REPORT INFORMATION
  Report Type: 
  Country: None (occurrence: None)
  Receive Date: 20050512
  Receipt Date: 20050502
  Transmission Date: 20051028
  Serious: Yes (Death)
  Sender: FDA-Public Use
  Company Number: BDI-007150

PATIENT
  Age: 64 Year
  Sex: Female

DRUGS (3)
  1. MULTIHANCE [Suspect]
     Indication: METASTATIC NEOPLASM
     Dosage: 15 ML IV
     Route: 042
     Dates: start: 20050501, end: 20050501
  2. MULTIHANCE [Suspect]
     Indication: NUCLEAR MAGNETIC RESONANCE IMAGING
     Dosage: 15 ML IV
     Route: 042
     Dates: start: 20050501, end: 20050501
  3. CHEMOTHERAPEUTICS [Concomitant]

REACTIONS (2)
  - CARDIAC ARREST [None]
  - PULSE PRESSURE DECREASED [None]
